FAERS Safety Report 5258480-8 (Version None)
Quarter: 2007Q1

REPORT INFORMATION
  Report Type: 
  Country: None (occurrence: None)
  Receive Date: 20070308
  Receipt Date: 20040107
  Transmission Date: 20070707
  Serious: Yes (Other)
  Sender: FDA-Public Use
  Company Number: PHBS2003DE07781

PATIENT
  Age: 64 Year
  Sex: Female

DRUGS (4)
  1. CYCLOSPORINE [Suspect]
     Indication: MYASTHENIA GRAVIS
     Route: 065
  2. PREDNISOLONE [Concomitant]
     Indication: MYASTHENIA GRAVIS
     Route: 065
  3. PYRIDOSTIGMINE BROMIDE [Concomitant]
     Indication: MYASTHENIA GRAVIS
     Route: 065
  4. GABAPENTIN [Suspect]
     Indication: NEURALGIA
     Dosage: 600 MG/D

REACTIONS (4)
  - HERPES ZOSTER [None]
  - MUSCULAR WEAKNESS [None]
  - MYASTHENIA GRAVIS [None]
  - POST HERPETIC NEURALGIA [None]
